FAERS Safety Report 25054407 (Version 4)
Quarter: 2025Q2

REPORT INFORMATION
  Report Type: Spontaneous
  Country: US (occurrence: US)
  Receive Date: 20250307
  Receipt Date: 20250620
  Transmission Date: 20250717
  Serious: No
  Sender: SANOFI AVENTIS
  Company Number: US-SA-2025SA066195

PATIENT
  Age: 61 Year
  Sex: Female

DRUGS (1)
  1. DUPIXENT [Suspect]
     Active Substance: DUPILUMAB
     Indication: Dermatitis atopic
     Dosage: 300 MG, QOW
     Route: 058
     Dates: start: 202408

REACTIONS (5)
  - Pain [Unknown]
  - Arthropathy [Recovering/Resolving]
  - Arthralgia [Recovering/Resolving]
  - Joint stiffness [Recovering/Resolving]
  - Dermatitis atopic [Unknown]

NARRATIVE: CASE EVENT DATE: 20250101
